FAERS Safety Report 22240100 (Version 1)
Quarter: 2023Q2

REPORT INFORMATION
  Report Type: Spontaneous
  Country: ES (occurrence: ES)
  Receive Date: 20230421
  Receipt Date: 20230421
  Transmission Date: 20230721
  Serious: Yes (Hospitalization, Other)
  Sender: FDA-Public Use
  Company Number: ES-PFIZER INC-202201400854

PATIENT
  Age: 65 Year
  Sex: Female

DRUGS (12)
  1. RITUXIMAB [Suspect]
     Active Substance: RITUXIMAB
     Indication: Neuromyelitis optica spectrum disorder
     Dosage: UNK
  2. METAMIZOLE [Concomitant]
     Active Substance: METAMIZOLE
     Indication: COVID-19 immunisation
     Dosage: 575 MG, 3X/DAY 1-1-1
  3. PREGABALIN [Concomitant]
     Active Substance: PREGABALIN
     Indication: COVID-19 immunisation
     Dosage: 75 MG, 2X/DAY (1-0-1)
  4. ACETAMINOPHEN [Concomitant]
     Active Substance: ACETAMINOPHEN
     Indication: COVID-19 immunisation
     Dosage: 1 G, 3X/DAY 1-1-1
  5. TRELEGY ELLIPTA [Concomitant]
     Active Substance: FLUTICASONE FUROATE\UMECLIDINIUM BROMIDE\VILANTEROL TRIFENATATE
     Indication: COVID-19 immunisation
     Dosage: 1 DF, DAILY 1-0-0
  6. TRAZODONE [Concomitant]
     Active Substance: TRAZODONE HYDROCHLORIDE
     Indication: COVID-19 immunisation
     Dosage: 100 MG, DAILY 0-0-1
  7. ESOMEPRAZOLE [Concomitant]
     Active Substance: ESOMEPRAZOLE
     Indication: COVID-19 immunisation
     Dosage: 40 MG, 2X/DAY 1-0-1
  8. METFORMIN [Concomitant]
     Active Substance: METFORMIN HYDROCHLORIDE
     Dosage: 850 MG, 2X/DAY 1-0-1
  9. ESLICARBAZEPINE ACETATE [Concomitant]
     Active Substance: ESLICARBAZEPINE ACETATE
     Dosage: 800 MG, DAILY 0-0-1
  10. PALEXIA [Concomitant]
     Active Substance: TAPENTADOL HYDROCHLORIDE
     Dosage: 100 MG, 2X/DAY 1-0-1
  11. ATARAX [Concomitant]
     Active Substance: HYDROXYZINE HYDROCHLORIDE
     Dosage: 25 MG, 3X/DAY 1-1-1
  12. TIZANIDINE [Concomitant]
     Active Substance: TIZANIDINE
     Dosage: 2 MG, DAILY 0-0-1

REACTIONS (3)
  - Clostridium difficile infection [Unknown]
  - Neuromyelitis optica spectrum disorder [Not Recovered/Not Resolved]
  - Off label use [Unknown]

NARRATIVE: CASE EVENT DATE: 20220125
